FAERS Safety Report 14860188 (Version 2)
Quarter: 2018Q2

REPORT INFORMATION
  Report Type: Spontaneous
  Country: FR (occurrence: FR)
  Receive Date: 20180508
  Receipt Date: 20180510
  Transmission Date: 20180711
  Serious: Yes (Disabling, Other)
  Sender: FDA-Public Use
  Company Number: FR-UCBSA-2018018479

PATIENT
  Age: 62 Year
  Sex: Male

DRUGS (25)
  1. SIFROL [Suspect]
     Active Substance: PRAMIPEXOLE
     Dosage: 1.05 MG DAILY, STRENGTH: 1.05 MG
     Route: 048
     Dates: start: 20170225
  2. DEXAMBUTOL [Concomitant]
     Active Substance: ETHAMBUTOL HYDROCHLORIDE
     Indication: PRODUCT USED FOR UNKNOWN INDICATION
     Dosage: 2DF IN THE MORNING, FASTING STRENGTH: 500 MG
     Route: 048
     Dates: start: 20160608
  3. DOMPERIDONE [Concomitant]
     Active Substance: DOMPERIDONE
     Indication: PRODUCT USED FOR UNKNOWN INDICATION
     Dosage: UNK
  4. TARDYFERON [Concomitant]
     Active Substance: FERROUS SULFATE
     Indication: PRODUCT USED FOR UNKNOWN INDICATION
  5. AZILECT [Suspect]
     Active Substance: RASAGILINE MESYLATE
     Indication: PARKINSONISM
     Dosage: 1 DF STRENGTH: 1 MG
     Dates: start: 20141217
  6. SIFROL [Suspect]
     Active Substance: PRAMIPEXOLE
     Dosage: 1.05 MG, STRENGTH: 1.05 MG
     Route: 048
     Dates: start: 201603
  7. KARDEGIC [Concomitant]
     Active Substance: ASPIRIN DL-LYSINE
     Indication: PRODUCT USED FOR UNKNOWN INDICATION
     Dosage: STRENGTH: 160
  8. SERETIDE [Concomitant]
     Active Substance: FLUTICASONE PROPIONATE\SALMETEROL XINAFOATE
     Indication: PRODUCT USED FOR UNKNOWN INDICATION
     Dosage: 2 DF; STRENGTH: 500
     Dates: start: 2015
  9. TRIVASTAL [Concomitant]
     Active Substance: PIRIBEDIL
     Indication: PRODUCT USED FOR UNKNOWN INDICATION
     Dosage: UNK
  10. AMLOR [Suspect]
     Active Substance: AMLODIPINE BESYLATE
     Indication: PRODUCT USED FOR UNKNOWN INDICATION
     Dosage: UNK
     Route: 048
  11. LEDERFOLINE [Concomitant]
     Active Substance: LEUCOVORIN CALCIUM
     Indication: PRODUCT USED FOR UNKNOWN INDICATION
     Dosage: UNK
  12. LYRICA [Concomitant]
     Active Substance: PREGABALIN
     Indication: PRODUCT USED FOR UNKNOWN INDICATION
     Dosage: STRENGTH: 25
     Route: 048
  13. NEUPRO [Suspect]
     Active Substance: ROTIGOTINE
     Indication: PRODUCT USED FOR UNKNOWN INDICATION
     Dosage: UNK
     Route: 062
  14. SIFROL [Suspect]
     Active Substance: PRAMIPEXOLE
     Indication: PARKINSONISM
     Dosage: 0.26 MG DAILY; STRENGTH: 1.05 MG
     Route: 048
     Dates: start: 20150723
  15. RIFINAH [Suspect]
     Active Substance: ISONIAZID\RIFAMPIN
     Indication: SILICOTUBERCULOSIS
     Dosage: 2 DF DAILY, FASTING, EITHER 1H BEFORE BREAKFAST OR 4H BEFORE DINNER
     Dates: start: 20160812
  16. VENTOLINE [Concomitant]
     Active Substance: ALBUTEROL
     Indication: PRODUCT USED FOR UNKNOWN INDICATION
     Dosage: 2 DF, UNK
     Dates: start: 2015
  17. SIFROL [Suspect]
     Active Substance: PRAMIPEXOLE
     Dosage: 0.52 MG DAILY, STRENGTH: 0.52 MG
     Route: 048
     Dates: end: 20170225
  18. LEVITRA [Concomitant]
     Active Substance: VARDENAFIL HYDROCHLORIDE TRIHYDRATE
     Indication: PRODUCT USED FOR UNKNOWN INDICATION
     Dosage: UNK
     Route: 065
  19. TAHOR [Concomitant]
     Active Substance: ATORVASTATIN CALCIUM
     Indication: PRODUCT USED FOR UNKNOWN INDICATION
     Dosage: UNK
  20. EFIENT [Concomitant]
     Active Substance: PRASUGREL HYDROCHLORIDE
     Indication: PRODUCT USED FOR UNKNOWN INDICATION
  21. RIFATER [Suspect]
     Active Substance: ISONIAZID\PYRAZINAMIDE\RIFAMPIN
     Indication: SILICOTUBERCULOSIS
     Dosage: 5 DF, A DAY
     Dates: start: 20160612, end: 20160812
  22. AUGMENTIN [Concomitant]
     Active Substance: AMOXICILLIN\CLAVULANATE POTASSIUM
     Indication: PRODUCT USED FOR UNKNOWN INDICATION
     Dosage: UNK
  23. RIMIFON [Interacting]
     Active Substance: ISONIAZID
     Indication: SILICOTUBERCULOSIS
     Dosage: 2 DF, DAILY
     Dates: start: 20161212, end: 20161215
  24. TRIATEC (RAMIPRIL) [Concomitant]
     Active Substance: RAMIPRIL
     Indication: PRODUCT USED FOR UNKNOWN INDICATION
     Dosage: STRENGTH: 0.5
     Route: 048
  25. VITAMIN B1 AND B6 [Concomitant]
     Active Substance: PYRIDOXINE HYDROCHLORIDE\THIAMINE HYDROCHLORIDE
     Indication: PRODUCT USED FOR UNKNOWN INDICATION
     Dosage: 2 DF IN THE MORNING
     Route: 048
     Dates: start: 20160608

REACTIONS (25)
  - Constipation [Not Recovered/Not Resolved]
  - Muscular weakness [Not Recovered/Not Resolved]
  - Neuropathy peripheral [Unknown]
  - Suicidal ideation [Not Recovered/Not Resolved]
  - Disinhibition [Not Recovered/Not Resolved]
  - Dizziness [Unknown]
  - Weight decreased [Unknown]
  - Potentiating drug interaction [Not Recovered/Not Resolved]
  - Crying [Not Recovered/Not Resolved]
  - Gait disturbance [Unknown]
  - Compulsive shopping [Not Recovered/Not Resolved]
  - Musculoskeletal disorder [Not Recovered/Not Resolved]
  - Loss of personal independence in daily activities [Unknown]
  - Nervous system disorder [Recovering/Resolving]
  - Supraventricular tachycardia [Unknown]
  - Melanocytic naevus [Not Recovered/Not Resolved]
  - Malaise [Not Recovered/Not Resolved]
  - Postural tremor [Not Recovered/Not Resolved]
  - Vision blurred [Not Recovered/Not Resolved]
  - Extrapyramidal disorder [Not Recovered/Not Resolved]
  - Myalgia [Unknown]
  - Fatigue [Not Recovered/Not Resolved]
  - Pain [Unknown]
  - Delusion [Not Recovered/Not Resolved]
  - Condition aggravated [Not Recovered/Not Resolved]

NARRATIVE: CASE EVENT DATE: 201507
